FAERS Safety Report 18866043 (Version 1)
Quarter: 2021Q1

REPORT INFORMATION
  Report Type: Spontaneous
  Country: US (occurrence: US)
  Receive Date: 20210209
  Receipt Date: 20210209
  Transmission Date: 20210420
  Serious: Yes (Disabling, Other)
  Sender: FDA-Public Use
  Company Number: None

PATIENT
  Age: 64 Year
  Sex: Female

DRUGS (37)
  1. METFORMIN [Concomitant]
     Active Substance: METFORMIN HYDROCHLORIDE
  2. NABUMETONE. [Concomitant]
     Active Substance: NABUMETONE
  3. AZELASTINE NASAL SPRAY 0.1% [Concomitant]
  4. LEVOTHYRIXINE [Concomitant]
  5. CYCLOBENZAPRINE. [Concomitant]
     Active Substance: CYCLOBENZAPRINE
  6. SIMETHICONE (DIMETHICONE) [Concomitant]
     Active Substance: DIMETHICONE
  7. LIDOCAINE OINTMENT [Concomitant]
     Active Substance: LIDOCAINE
  8. VITAMINS [Concomitant]
     Active Substance: VITAMINS
  9. CALCIUM TABLETS TUMS CALCIUM [Concomitant]
  10. MUPIROCIN OINTMENT [Concomitant]
     Active Substance: MUPIROCIN
  11. FIBER PILLS [Concomitant]
  12. MAGNESIUM [Concomitant]
     Active Substance: MAGNESIUM
  13. ZINC. [Concomitant]
     Active Substance: ZINC
  14. EUCRISA [Concomitant]
     Active Substance: CRISABOROLE
  15. CPAP MACHINE [Concomitant]
  16. CLOPIDOGREL [Concomitant]
     Active Substance: CLOPIDOGREL BISULFATE
  17. PANTOPRAZOLE SOD DR [Concomitant]
     Active Substance: PANTOPRAZOLE SODIUM
  18. LOSARTAN. [Concomitant]
     Active Substance: LOSARTAN
  19. HYDROMORPHONE [Concomitant]
     Active Substance: HYDROMORPHONE
  20. DIAZEPAM. [Concomitant]
     Active Substance: DIAZEPAM
  21. COLCRYS [Concomitant]
     Active Substance: COLCHICINE
  22. CENTRUM SILVER VITAMINS WOMEN NIGHT [Concomitant]
  23. SINGULAIR [Concomitant]
     Active Substance: MONTELUKAST SODIUM
  24. CETERIZINE HCL [Concomitant]
  25. NEBULIZER ALBUTEROL SULFATE [Concomitant]
  26. BUDESONIDE. [Concomitant]
     Active Substance: BUDESONIDE
  27. TRIAMCINOLENE ACETONIDE CREAM [Concomitant]
  28. FLONASE [Concomitant]
     Active Substance: FLUTICASONE PROPIONATE
  29. GLUCOSAMINE [Concomitant]
     Active Substance: GLUCOSAMINE
  30. MSM DIVINE BOUNTY VEGAN [Concomitant]
  31. NYSTATIN. [Concomitant]
     Active Substance: NYSTATIN
  32. XHANCE [Suspect]
     Active Substance: FLUTICASONE PROPIONATE
     Indication: HYPERSENSITIVITY
     Dosage: ?          OTHER STRENGTH:MCG;QUANTITY:1 SPRAY(S);OTHER ROUTE:SPRAY INTO NOSTRIL?
     Route: 045
     Dates: start: 20210128, end: 20210206
  33. PERCOCET [Concomitant]
     Active Substance: ACETAMINOPHEN\OXYCODONE HYDROCHLORIDE
  34. PRESERVISION AREDS 2 [Concomitant]
     Active Substance: MINERALS\VITAMINS
  35. VITAMIN D2 [Concomitant]
     Active Substance: ERGOCALCIFEROL
  36. DICLOFENAC SODIUM GEL [Concomitant]
     Active Substance: DICLOFENAC SODIUM
  37. FLUOCINONIDE OINTMENT [Concomitant]
     Active Substance: FLUOCINONIDE

REACTIONS (3)
  - Epistaxis [None]
  - Pain [None]
  - Cystitis [None]

NARRATIVE: CASE EVENT DATE: 20210129
